FAERS Safety Report 23907100 (Version 8)
Quarter: 2025Q3

REPORT INFORMATION
  Report Type: Report from Study
  Country: CN (occurrence: CN)
  Receive Date: 20240528
  Receipt Date: 20250829
  Transmission Date: 20251021
  Serious: Yes (Other)
  Sender: ROCHE
  Company Number: CN-ROCHE-3569361

PATIENT
  Age: 73 Year
  Sex: Female
  Weight: 52.2 kg

DRUGS (59)
  1. POLATUZUMAB VEDOTIN [Suspect]
     Active Substance: POLATUZUMAB VEDOTIN
     Indication: Diffuse large B-cell lymphoma
     Route: 042
     Dates: start: 20231103, end: 20231103
  2. POLATUZUMAB VEDOTIN [Suspect]
     Active Substance: POLATUZUMAB VEDOTIN
     Route: 042
     Dates: start: 20230902, end: 20230902
  3. POLATUZUMAB VEDOTIN [Suspect]
     Active Substance: POLATUZUMAB VEDOTIN
     Route: 042
     Dates: start: 20230529, end: 20230529
  4. POLATUZUMAB VEDOTIN [Suspect]
     Active Substance: POLATUZUMAB VEDOTIN
     Dosage: ON 29-MAY-2023, SHE RECEIVED MOST RECENT DOSE  OF POLATUZUMAB PRIOR TO AE.
     Route: 042
     Dates: start: 20230927, end: 20230927
  5. RITUXIMAB [Suspect]
     Active Substance: RITUXIMAB
     Indication: Diffuse large B-cell lymphoma
     Route: 042
     Dates: start: 20230625, end: 20230625
  6. RITUXIMAB [Suspect]
     Active Substance: RITUXIMAB
     Route: 042
     Dates: start: 20230725, end: 20230725
  7. RITUXIMAB [Suspect]
     Active Substance: RITUXIMAB
     Route: 042
     Dates: start: 20230901, end: 20230901
  8. RITUXIMAB [Suspect]
     Active Substance: RITUXIMAB
     Route: 042
     Dates: start: 20230926, end: 20230926
  9. RITUXIMAB [Suspect]
     Active Substance: RITUXIMAB
     Route: 042
     Dates: start: 20231102, end: 20231102
  10. RITUXIMAB [Suspect]
     Active Substance: RITUXIMAB
     Dosage: ON 31-MAY-2023, SHE RECEIVED MOST RECENT DOSE OF RITUXIMAB PRIOR TO AE.
     Route: 042
     Dates: start: 20230531, end: 20230531
  11. EPIRUBICIN HYDROCHLORIDE [Suspect]
     Active Substance: EPIRUBICIN HYDROCHLORIDE
     Indication: Diffuse large B-cell lymphoma
     Dosage: ON 29-MAY-2023, SHE RECEIVED MOST RECENT DOSE  OF EPIRUBICIN PRIOR TO AE.
     Route: 042
     Dates: start: 20230529, end: 20230529
  12. EPIRUBICIN HYDROCHLORIDE [Suspect]
     Active Substance: EPIRUBICIN HYDROCHLORIDE
     Route: 042
     Dates: start: 20230530, end: 20230530
  13. EPIRUBICIN HYDROCHLORIDE [Suspect]
     Active Substance: EPIRUBICIN HYDROCHLORIDE
     Route: 042
     Dates: start: 20230902, end: 20230902
  14. EPIRUBICIN HYDROCHLORIDE [Suspect]
     Active Substance: EPIRUBICIN HYDROCHLORIDE
     Route: 042
     Dates: start: 20231102, end: 20231102
  15. EPIRUBICIN HYDROCHLORIDE [Suspect]
     Active Substance: EPIRUBICIN HYDROCHLORIDE
     Route: 042
     Dates: start: 20230927, end: 20230927
  16. CYCLOPHOSPHAMIDE [Suspect]
     Active Substance: CYCLOPHOSPHAMIDE
     Indication: Diffuse large B-cell lymphoma
     Dosage: ON 29-MAY-2023, SHE RECEIVED MOST RECENT DOSE OF CYCLOPHOSPHAMIDE PRIOR TO AE.
     Route: 042
     Dates: start: 20230529, end: 20230530
  17. CYCLOPHOSPHAMIDE [Suspect]
     Active Substance: CYCLOPHOSPHAMIDE
     Route: 042
     Dates: start: 20230902, end: 20230902
  18. CYCLOPHOSPHAMIDE [Suspect]
     Active Substance: CYCLOPHOSPHAMIDE
     Route: 042
     Dates: start: 20230927, end: 20230927
  19. METHYLPREDNISOLONE SODIUM SUCCINATE [Suspect]
     Active Substance: METHYLPREDNISOLONE SODIUM SUCCINATE
     Indication: Diffuse large B-cell lymphoma
     Route: 042
     Dates: start: 20230626, end: 20230630
  20. METHYLPREDNISOLONE SODIUM SUCCINATE [Suspect]
     Active Substance: METHYLPREDNISOLONE SODIUM SUCCINATE
     Route: 042
     Dates: start: 20230529, end: 20230602
  21. METHYLPREDNISOLONE SODIUM SUCCINATE [Suspect]
     Active Substance: METHYLPREDNISOLONE SODIUM SUCCINATE
     Route: 048
     Dates: start: 20230902, end: 20230906
  22. METHYLPREDNISOLONE SODIUM SUCCINATE [Suspect]
     Active Substance: METHYLPREDNISOLONE SODIUM SUCCINATE
     Route: 048
     Dates: start: 20230530, end: 20230603
  23. PREDNISONE [Suspect]
     Active Substance: PREDNISONE
     Indication: Diffuse large B-cell lymphoma
     Route: 048
     Dates: end: 20231001
  24. PREDNISONE [Suspect]
     Active Substance: PREDNISONE
     Route: 048
     Dates: start: 20231102, end: 20231102
  25. ENTECAVIR [Concomitant]
     Active Substance: ENTECAVIR
     Dosage: MEDICATION DOSE: 1 TABLET
     Route: 048
     Dates: start: 20230527
  26. leucogen tablet [Concomitant]
     Route: 048
     Dates: start: 20230603
  27. leucogen tablet [Concomitant]
     Route: 048
     Dates: start: 20230603
  28. compound paracetamol tablet [Concomitant]
     Route: 048
     Dates: start: 20230903, end: 20230903
  29. compound paracetamol tablet [Concomitant]
     Route: 048
     Dates: start: 20230903, end: 20230904
  30. PROMETHAZINE [Concomitant]
     Active Substance: PROMETHAZINE HYDROCHLORIDE
     Route: 030
     Dates: start: 20230531, end: 20230531
  31. PROMETHAZINE [Concomitant]
     Active Substance: PROMETHAZINE HYDROCHLORIDE
     Route: 030
     Dates: start: 20230903, end: 20230903
  32. PROMETHAZINE [Concomitant]
     Active Substance: PROMETHAZINE HYDROCHLORIDE
     Route: 030
     Dates: start: 20230625, end: 20230821
  33. omeprazole enteric-coated capsules [Concomitant]
     Route: 048
     Dates: start: 20230902, end: 20230906
  34. omeprazole enteric-coated capsules [Concomitant]
     Route: 048
     Dates: start: 20230927, end: 20230927
  35. omeprazole enteric-coated capsules [Concomitant]
     Route: 042
     Dates: start: 20230625, end: 20230625
  36. omeprazole enteric-coated capsules [Concomitant]
     Route: 048
     Dates: start: 20230526
  37. omeprazole enteric-coated capsules [Concomitant]
     Route: 042
     Dates: start: 20230530, end: 20230603
  38. omeprazole enteric-coated capsules [Concomitant]
     Route: 042
     Dates: start: 20231221
  39. GLYCOSAMINOGLYCANS [Concomitant]
     Active Substance: GLYCOSAMINOGLYCANS
     Dates: start: 20230529, end: 20230602
  40. Latamoxef Sodium For Injection [Concomitant]
     Route: 042
     Dates: start: 20230926, end: 20230926
  41. Latamoxef Sodium For Injection [Concomitant]
     Route: 042
     Dates: start: 20230901, end: 20230901
  42. Latamoxef Sodium For Injection [Concomitant]
     Route: 042
     Dates: start: 20230725, end: 20230725
  43. Latamoxef Sodium For Injection [Concomitant]
     Route: 042
     Dates: start: 20230901, end: 20230901
  44. Latamoxef Sodium For Injection [Concomitant]
     Route: 042
     Dates: start: 20230725, end: 20230725
  45. LIDOCAINE HYDROCHLORIDE [Concomitant]
     Active Substance: LIDOCAINE HYDROCHLORIDE
     Route: 058
     Dates: start: 20230601, end: 20230601
  46. LIDOCAINE HYDROCHLORIDE [Concomitant]
     Active Substance: LIDOCAINE HYDROCHLORIDE
     Route: 058
     Dates: start: 20230724, end: 20230726
  47. MOMETASONE FUROATE [Concomitant]
     Active Substance: MOMETASONE FUROATE
     Dates: start: 20230726, end: 20230726
  48. omeprazole sodium for injection [Concomitant]
     Route: 042
     Dates: start: 20230625, end: 20230625
  49. omeprazole sodium for injection [Concomitant]
     Route: 042
     Dates: start: 20230530, end: 20230603
  50. METHYLPREDNISOLONE SODIUM SUCCINATE [Concomitant]
     Active Substance: METHYLPREDNISOLONE SODIUM SUCCINATE
     Route: 042
     Dates: start: 20230530, end: 20230603
  51. Palonosetron hydrochloride capsules [Concomitant]
     Route: 048
     Dates: start: 20230529, end: 20230529
  52. DEXAMETHASONE SODIUM PHOSPHATE [Concomitant]
     Active Substance: DEXAMETHASONE SODIUM PHOSPHATE
     Route: 042
     Dates: start: 20230625, end: 20230625
  53. DEXAMETHASONE SODIUM PHOSPHATE [Concomitant]
     Active Substance: DEXAMETHASONE SODIUM PHOSPHATE
     Route: 042
     Dates: start: 20230601, end: 20230601
  54. CEFACLOR [Concomitant]
     Active Substance: CEFACLOR
  55. ALUMINUM SULFATE [Concomitant]
     Active Substance: ALUMINUM SULFATE
  56. Pegylated recombinant human granulocyte stimulating factor [Concomitant]
  57. SODIUM BICARBONATE [Concomitant]
     Active Substance: SODIUM BICARBONATE
  58. CETIRIZINE [Concomitant]
     Active Substance: CETIRIZINE HYDROCHLORIDE
  59. cefazoxime sodium [Concomitant]

REACTIONS (5)
  - Lymphocyte count decreased [Not Recovered/Not Resolved]
  - White blood cell count decreased [Not Recovered/Not Resolved]
  - Hypoalbuminaemia [Not Recovered/Not Resolved]
  - Hypokalaemia [Recovered/Resolved]
  - Lipoma [Not Recovered/Not Resolved]

NARRATIVE: CASE EVENT DATE: 20230925
